FAERS Safety Report 9779425 (Version 3)
Quarter: 2014Q1

REPORT INFORMATION
  Report Type: Spontaneous
  Country: US (occurrence: US)
  Receive Date: 20131223
  Receipt Date: 20140124
  Transmission Date: 20141002
  Serious: Yes (Other)
  Sender: FDA-Public Use
  Company Number: US-TEVA-449571USA

PATIENT
  Age: 33 Year
  Sex: Female

DRUGS (1)
  1. PARAGARD 380A [Suspect]
     Indication: CONTRACEPTION
     Route: 015
     Dates: start: 20101001, end: 20131205

REACTIONS (3)
  - Actinomyces test positive [Unknown]
  - Smear cervix abnormal [Unknown]
  - Device expulsion [Recovered/Resolved]
